FAERS Safety Report 4779673-X (Version None)
Quarter: 2005Q3

REPORT INFORMATION
  Report Type: 
  Country: None (occurrence: None)
  Receive Date: 20050914
  Receipt Date: 20040817
  Transmission Date: 20060218
  Serious: Yes (Death)
  Sender: FDA-Public Use
  Company Number: 044-20785-04070308

PATIENT
  Age: 40 Year
  Sex: Male

DRUGS (7)
  1. THALIDOMIDE - PHARMION (THALIDOMIDE) (CAPSULES) [Suspect]
     Indication: MULTIPLE MYELOMA
     Dosage: 150 MG, DAILY, ORAL
     Route: 048
     Dates: start: 20040129, end: 20040101
  2. CONTALGIN (MORPHINE SULFATE) [Concomitant]
  3. A-COMBIN [Concomitant]
  4. NEXIUM [Concomitant]
  5. THIAMIN (THIAMINE HYDROCHLORIDE) [Concomitant]
  6. FUROSEMIDE [Concomitant]
  7. ZYPREXA [Concomitant]

REACTIONS (2)
  - DISEASE PROGRESSION [None]
  - SEPSIS [None]
